FAERS Safety Report 23936082 (Version 1)
Quarter: 2024Q2

REPORT INFORMATION
  Report Type: Spontaneous
  Country: GB (occurrence: GB)
  Receive Date: 20240604
  Receipt Date: 20240604
  Transmission Date: 20240716
  Serious: Yes (Other)
  Sender: FDA-Public Use
  Company Number: GB-MHRA-EMIS-4927-592d9992-c191-45c2-b820-bd7eb60af6fe

PATIENT
  Age: 80 Year
  Sex: Male
  Weight: 88 kg

DRUGS (3)
  1. LINAGLIPTIN [Suspect]
     Active Substance: LINAGLIPTIN
     Indication: Product used for unknown indication
     Dosage: ONE DAILY AFTER BREAKFAST MEAL
     Dates: start: 20240409, end: 20240530
  2. ROSUVASTATIN [Concomitant]
     Active Substance: ROSUVASTATIN
     Indication: Product used for unknown indication
     Dosage: ONE TO BE TAKEN EACH DAY
     Dates: start: 20240409
  3. SPIKEVAX (ELASOMERAN) [Concomitant]
     Active Substance: ELASOMERAN
     Indication: Product used for unknown indication
     Dosage: 0.5 ML INTRAMUSCULAR
     Route: 030
     Dates: start: 20240504

REACTIONS (2)
  - Muscle spasms [Unknown]
  - Dizziness [Unknown]
